FAERS Safety Report 10574626 (Version 1)
Quarter: 2014Q4

REPORT INFORMATION
  Report Type: Spontaneous
  Country: IN (occurrence: IN)
  Receive Date: 20141110
  Receipt Date: 20141110
  Transmission Date: 20150529
  Serious: Yes (Hospitalization)
  Sender: FDA-Public Use
  Company Number: IN-MYLANLABS-2014M1009609

PATIENT

DRUGS (2)
  1. RAMIPRIL. [Suspect]
     Active Substance: RAMIPRIL
     Indication: SUICIDE ATTEMPT
     Dosage: CONSUMED 20 TABLETS
     Route: 048
  2. RAMIPRIL. [Suspect]
     Active Substance: RAMIPRIL
     Indication: OFF LABEL USE

REACTIONS (12)
  - Acute kidney injury [Unknown]
  - Toxicity to various agents [Recovering/Resolving]
  - Suicide attempt [Recovering/Resolving]
  - Lactic acidosis [None]
  - Metabolic acidosis [Unknown]
  - Hypothermia [Recovering/Resolving]
  - Cardiogenic shock [Recovering/Resolving]
  - Circulatory collapse [Recovering/Resolving]
  - Intentional overdose [Recovering/Resolving]
  - Hypotension [Recovering/Resolving]
  - Hyperkalaemia [Unknown]
  - Hepatic function abnormal [Recovering/Resolving]
